FAERS Safety Report 24883653 (Version 1)
Quarter: 2025Q1

REPORT INFORMATION
  Report Type: Spontaneous
  Country: CA (occurrence: CA)
  Receive Date: 20250124
  Receipt Date: 20250124
  Transmission Date: 20250409
  Serious: Yes (Other)
  Sender: PFIZER
  Company Number: CA-PFIZER INC-PV202400169371

PATIENT
  Age: 4 Year
  Sex: Female

DRUGS (1)
  1. RAPAMUNE [Suspect]
     Active Substance: SIROLIMUS
     Indication: Vascular malformation
     Dosage: 1 MG, 2X/DAY
     Dates: start: 202305

REACTIONS (4)
  - Pneumonia [Unknown]
  - Off label use [Unknown]
  - Off label use [Unknown]
  - Off label use [Unknown]

NARRATIVE: CASE EVENT DATE: 20230501
